FAERS Safety Report 26144375 (Version 1)
Quarter: 2025Q4

REPORT INFORMATION
  Report Type: Spontaneous
  Country: US (occurrence: US)
  Receive Date: 20251211
  Receipt Date: 20251211
  Transmission Date: 20260118
  Serious: Yes (Other)
  Sender: ROCHE
  Company Number: US-ROCHE-10000455830

PATIENT
  Age: 66 Year
  Sex: Female

DRUGS (11)
  1. RITUXIMAB [Suspect]
     Active Substance: RITUXIMAB
     Indication: Follicular lymphoma
  2. RITUXIMAB [Suspect]
     Active Substance: RITUXIMAB
     Dates: start: 201706, end: 201710
  3. RITUXIMAB [Suspect]
     Active Substance: RITUXIMAB
  4. CYCLOPHOSPHAMIDE [Concomitant]
     Active Substance: CYCLOPHOSPHAMIDE
  5. EPIRUBICIN [Concomitant]
     Active Substance: EPIRUBICIN
  6. ONCOVIN [Concomitant]
     Active Substance: VINCRISTINE SULFATE
  7. PREDNISONE [Concomitant]
     Active Substance: PREDNISONE
  8. BENDAMUSTINE [Concomitant]
     Active Substance: BENDAMUSTINE
     Dates: start: 201706, end: 201710
  9. VENETOCLAX [Concomitant]
     Active Substance: VENETOCLAX
  10. IDELALISIB [Concomitant]
     Active Substance: IDELALISIB
  11. OBINUTUZUMAB [Concomitant]
     Active Substance: OBINUTUZUMAB

REACTIONS (1)
  - Febrile neutropenia [Unknown]
